FAERS Safety Report 20919494 (Version 1)
Quarter: 2022Q2

REPORT INFORMATION
  Report Type: Spontaneous
  Country: US (occurrence: None)
  Receive Date: 20220603
  Receipt Date: 20220603
  Transmission Date: 20220720
  Serious: Yes (unspecified)
  Sender: FDA-Public Use
  Company Number: None

PATIENT
  Age: 18 Year
  Sex: Male
  Weight: 75.5 kg

DRUGS (3)
  1. INFLECTRA [Suspect]
     Active Substance: INFLIXIMAB-DYYB
     Indication: Crohn^s disease
     Dosage: FREQUENCY : ONCE;?
     Route: 041
     Dates: start: 20220602, end: 20220602
  2. EpiPen Adult [Concomitant]
     Dates: start: 20220602, end: 20220602
  3. Hydrocortisone 100 mg IVP [Concomitant]
     Dates: start: 20220602, end: 20220602

REACTIONS (4)
  - Infusion related reaction [None]
  - Malaise [None]
  - Throat tightness [None]
  - Nausea [None]

NARRATIVE: CASE EVENT DATE: 20220602
